FAERS Safety Report 23338874 (Version 1)
Quarter: 2023Q4

REPORT INFORMATION
  Report Type: Spontaneous
  Country: US (occurrence: US)
  Receive Date: 20231226
  Receipt Date: 20231226
  Transmission Date: 20240109
  Serious: Yes (Hospitalization, Other)
  Sender: FDA-Public Use
  Company Number: US-JNJFOC-20231243636

PATIENT
  Sex: Male

DRUGS (3)
  1. INVEGA SUSTENNA [Suspect]
     Active Substance: PALIPERIDONE PALMITATE
     Indication: Product used for unknown indication
     Route: 065
  2. INVEGA SUSTENNA [Suspect]
     Active Substance: PALIPERIDONE PALMITATE
  3. INVEGA SUSTENNA [Suspect]
     Active Substance: PALIPERIDONE PALMITATE

REACTIONS (10)
  - Lyme disease [Unknown]
  - Suicidal ideation [Recovered/Resolved]
  - Noninfective encephalitis [Unknown]
  - Obsessive-compulsive disorder [Unknown]
  - Nonspecific reaction [Unknown]
  - Libido decreased [Unknown]
  - Tremor [Recovering/Resolving]
  - Poor quality sleep [Unknown]
  - Skin odour abnormal [Unknown]
  - Akathisia [Recovering/Resolving]
